FAERS Safety Report 11231177 (Version 1)
Quarter: 2015Q3

REPORT INFORMATION
  Report Type: Spontaneous
  Country: US (occurrence: US)
  Receive Date: 20150701
  Receipt Date: 20150701
  Transmission Date: 20151125
  Serious: Yes (Disabling, Other)
  Sender: FDA-Public Use
  Company Number: US-SA-2015SA090801

PATIENT
  Sex: Female

DRUGS (9)
  1. TRAMADOL. [Suspect]
     Active Substance: TRAMADOL
     Route: 065
  2. ZOLOFT [Suspect]
     Active Substance: SERTRALINE HYDROCHLORIDE
     Route: 065
  3. PRINIVIL [Suspect]
     Active Substance: LISINOPRIL
     Route: 065
  4. LASIX [Suspect]
     Active Substance: FUROSEMIDE
     Route: 065
  5. GABAPENTIN. [Suspect]
     Active Substance: GABAPENTIN
     Route: 065
  6. EFFEXOR [Suspect]
     Active Substance: VENLAFAXINE HYDROCHLORIDE
     Route: 065
  7. LANTUS [Suspect]
     Active Substance: INSULIN GLARGINE
     Route: 065
  8. TRAZODONE [Suspect]
     Active Substance: TRAZODONE HYDROCHLORIDE
     Route: 065
  9. CALTRATE [Suspect]
     Active Substance: CALCIUM CARBONATE
     Route: 065

REACTIONS (5)
  - Intervertebral disc protrusion [Unknown]
  - Spinal column stenosis [Unknown]
  - Sciatica [Unknown]
  - Disability [Unknown]
  - Type 2 diabetes mellitus [Unknown]
